FAERS Safety Report 9104902 (Version 2)
Quarter: 2013Q2

REPORT INFORMATION
  Report Type: Spontaneous
  Country: CA (occurrence: CA)
  Receive Date: 20130219
  Receipt Date: 20130402
  Transmission Date: 20140414
  Serious: Yes (Other)
  Sender: FDA-Public Use
  Company Number: CA-AMGEN-CANSP2013010711

PATIENT
  Age: 53 Year
  Sex: Female

DRUGS (3)
  1. ENBREL [Suspect]
     Indication: PSORIASIS
     Dosage: UNK
     Dates: start: 20120228, end: 20120927
  2. STELERA [Concomitant]
     Dosage: UNK
  3. LYDERM                             /00280401/ [Concomitant]
     Dosage: UNK

REACTIONS (4)
  - Drug hypersensitivity [Recovered/Resolved]
  - Local swelling [Recovered/Resolved]
  - Erythema [Recovered/Resolved]
  - Burning sensation [Recovered/Resolved]
